FAERS Safety Report 11230562 (Version 2)
Quarter: 2015Q3

REPORT INFORMATION
  Report Type: Report from Study
  Country: US (occurrence: US)
  Receive Date: 20150701
  Receipt Date: 20150911
  Transmission Date: 20151125
  Serious: No
  Sender: FDA-Public Use
  Company Number: PHEH2015US006887

PATIENT
  Sex: Male
  Weight: 72.56 kg

DRUGS (7)
  1. GABAPENTIN. [Concomitant]
     Active Substance: GABAPENTIN
     Indication: PRODUCT USED FOR UNKNOWN INDICATION
     Dosage: 600 MG, UNK
     Route: 065
  2. MIRAPEX [Concomitant]
     Active Substance: PRAMIPEXOLE DIHYDROCHLORIDE
     Indication: PRODUCT USED FOR UNKNOWN INDICATION
     Dosage: UNK, UNK, QHS
     Route: 065
  3. GILENYA [Suspect]
     Active Substance: FINGOLIMOD HYDROCHLORIDE
     Indication: RELAPSING-REMITTING MULTIPLE SCLEROSIS
     Dosage: 0.5 MG, QD
     Route: 048
     Dates: start: 20120604, end: 20150612
  4. FLEXERIL [Concomitant]
     Active Substance: CYCLOBENZAPRINE HYDROCHLORIDE
     Indication: PRODUCT USED FOR UNKNOWN INDICATION
     Dosage: UNK, UNK, QHS
     Route: 065
  5. ROBAXIN [Concomitant]
     Active Substance: METHOCARBAMOL
     Indication: PRODUCT USED FOR UNKNOWN INDICATION
     Route: 065
  6. CYMBALTA [Concomitant]
     Active Substance: DULOXETINE HYDROCHLORIDE
     Indication: PRODUCT USED FOR UNKNOWN INDICATION
     Route: 065
  7. SOLU-MEDROL [Concomitant]
     Active Substance: METHYLPREDNISOLONE SODIUM SUCCINATE
     Indication: PRODUCT USED FOR UNKNOWN INDICATION
     Route: 042

REACTIONS (38)
  - Sleep disorder [Unknown]
  - Cognitive disorder [Unknown]
  - Heart rate increased [Unknown]
  - Swelling face [Unknown]
  - Diarrhoea [Unknown]
  - General physical health deterioration [Unknown]
  - Neuralgia [Unknown]
  - Muscle spasms [Recovering/Resolving]
  - Swelling [Unknown]
  - Nervousness [Unknown]
  - Disturbance in attention [Unknown]
  - Muscle spasticity [Unknown]
  - Pain in extremity [Unknown]
  - Asthenia [Unknown]
  - Blood pressure increased [Unknown]
  - Confusional state [Unknown]
  - Headache [Recovering/Resolving]
  - Back pain [Recovering/Resolving]
  - Fatigue [Unknown]
  - Visual impairment [Recovering/Resolving]
  - Anxiety [Unknown]
  - Nausea [Unknown]
  - Stress [Unknown]
  - Dyspepsia [Unknown]
  - Flank pain [Unknown]
  - Herpes zoster [Unknown]
  - Influenza [Unknown]
  - Malaise [Unknown]
  - Hypoaesthesia [Unknown]
  - Vertigo positional [Unknown]
  - Decreased appetite [Unknown]
  - Muscle tightness [Unknown]
  - Dizziness [Unknown]
  - Tremor [Unknown]
  - Agitation [Unknown]
  - Hypertonia [Unknown]
  - Multiple sclerosis relapse [Not Recovered/Not Resolved]
  - Gait disturbance [Unknown]
